FAERS Safety Report 13782054 (Version 3)
Quarter: 2017Q4

REPORT INFORMATION
  Report Type: Spontaneous
  Country: US (occurrence: US)
  Receive Date: 20170724
  Receipt Date: 20171002
  Transmission Date: 20180320
  Serious: Yes (Death)
  Sender: FDA-Public Use
  Company Number: US-ALKERMES INC.-ALK-2017-002928

PATIENT
  Age: 41 Year
  Sex: Female

DRUGS (4)
  1. CLONIDINE. [Concomitant]
     Active Substance: CLONIDINE
     Indication: PRODUCT USED FOR UNKNOWN INDICATION
     Dosage: 0.1 MG, BID
  2. VIVITROL [Suspect]
     Active Substance: NALTREXONE
     Indication: ALCOHOLISM
     Dosage: 380 MG, Q28D
     Route: 030
     Dates: start: 20161210, end: 20170523
  3. VIVITROL [Suspect]
     Active Substance: NALTREXONE
     Dosage: 380 MG, Q28D
     Route: 030
     Dates: end: 20170523
  4. GABAPENTIN. [Concomitant]
     Active Substance: GABAPENTIN
     Indication: PRODUCT USED FOR UNKNOWN INDICATION
     Dosage: 300 MG, TID
     Route: 048

REACTIONS (2)
  - Death [Fatal]
  - Drug use disorder [Unknown]

NARRATIVE: CASE EVENT DATE: 20170702
